FAERS Safety Report 18013424 (Version 2)
Quarter: 2020Q3

REPORT INFORMATION
  Report Type: Report from Study
  Country: CA (occurrence: CA)
  Receive Date: 20200713
  Receipt Date: 20200919
  Transmission Date: 20201103
  Serious: Yes (Death, Other)
  Sender: FDA-Public Use
  Company Number: CA-ACCORD-189558

PATIENT
  Age: 52 Year
  Sex: Male

DRUGS (6)
  1. COSENTYX [Suspect]
     Active Substance: SECUKINUMAB
     Indication: PSORIASIS
     Dosage: 1 EVERY 1 WEEKS
     Route: 058
  2. MORPHINE [Concomitant]
     Active Substance: MORPHINE
     Indication: PRODUCT USED FOR UNKNOWN INDICATION
  3. METHOTREXATE. [Suspect]
     Active Substance: METHOTREXATE
     Indication: PRODUCT USED FOR UNKNOWN INDICATION
  4. HUMIRA [Concomitant]
     Active Substance: ADALIMUMAB
     Indication: PRODUCT USED FOR UNKNOWN INDICATION
     Dosage: SOLUTION SUBCUTANEOUS
  5. COSENTYX [Suspect]
     Active Substance: SECUKINUMAB
     Indication: PSORIASIS
     Dosage: 1 EVERY 1 WEEKS
     Route: 058
  6. COSENTYX [Suspect]
     Active Substance: SECUKINUMAB
     Indication: PSORIASIS
     Dosage: 1 EVERY 1 MONTHS
     Route: 058

REACTIONS (20)
  - Diabetes mellitus [Fatal]
  - Influenza like illness [Fatal]
  - Malaise [Fatal]
  - Injection site pain [Fatal]
  - Renal cyst [Fatal]
  - Hepatic cirrhosis [Fatal]
  - Inappropriate schedule of product administration [Fatal]
  - Arthralgia [Fatal]
  - Hydronephrosis [Fatal]
  - Skin plaque [Fatal]
  - Weight decreased [Fatal]
  - Erythema [Fatal]
  - Headache [Fatal]
  - Nephrolithiasis [Fatal]
  - Hypoglycaemia [Fatal]
  - Migraine [Fatal]
  - Nausea [Fatal]
  - Scab [Fatal]
  - Dysstasia [Fatal]
  - Feeling hot [Fatal]
